FAERS Safety Report 20782039 (Version 7)
Quarter: 2023Q1

REPORT INFORMATION
  Report Type: Spontaneous
  Country: US (occurrence: US)
  Receive Date: 20220504
  Receipt Date: 20230222
  Transmission Date: 20230418
  Serious: No
  Sender: FDA-Public Use
  Company Number: US-KARYOPHARM-2022KPT000478

PATIENT

DRUGS (8)
  1. XPOVIO [Suspect]
     Active Substance: SELINEXOR
     Indication: Plasma cell myeloma
     Dosage: 80 MG, 2X/WEEK
     Route: 048
     Dates: start: 20220411, end: 20220505
  2. XPOVIO [Suspect]
     Active Substance: SELINEXOR
     Dosage: 40 MG, 2X/WEEK
     Route: 048
     Dates: start: 20220502, end: 20220504
  3. XPOVIO [Suspect]
     Active Substance: SELINEXOR
     Dosage: 20 MG, 2X/WEEK ON MONDAYS AND WEDNESDAYS
     Route: 048
     Dates: start: 20220616, end: 202207
  4. XPOVIO [Suspect]
     Active Substance: SELINEXOR
     Dosage: 40 MG, 2X/WEEK
     Dates: start: 20220718
  5. XPOVIO [Suspect]
     Active Substance: SELINEXOR
     Dosage: 60 MG, 2X/WEEK
     Route: 048
     Dates: start: 2022, end: 2022
  6. XPOVIO [Suspect]
     Active Substance: SELINEXOR
     Dosage: 40 MG, 2X/WEEK
     Dates: start: 20221201
  7. XPOVIO [Suspect]
     Active Substance: SELINEXOR
     Dosage: 40 MG WEEKLY ON MONDAYS AND 20 MG WEEKLY ON WEDNESDAYS
     Route: 048
     Dates: start: 2023
  8. DEXAMETHASONE [Concomitant]
     Active Substance: DEXAMETHASONE
     Dosage: 20 MG, 2X/WEEK
     Dates: start: 20220411

REACTIONS (10)
  - Abdominal discomfort [Unknown]
  - Hypotension [Unknown]
  - Hypertension [Unknown]
  - Taste disorder [Unknown]
  - Bone pain [Unknown]
  - Blood glucose increased [Unknown]
  - Tooth abscess [Unknown]
  - Thrombocytopenia [Recovering/Resolving]
  - Nausea [Unknown]
  - Fatigue [Unknown]

NARRATIVE: CASE EVENT DATE: 20220101
